FAERS Safety Report 20006656 (Version 1)
Quarter: 2021Q4

REPORT INFORMATION
  Report Type: Spontaneous
  Country: US (occurrence: US)
  Receive Date: 20211028
  Receipt Date: 20211028
  Transmission Date: 20220303
  Serious: Yes (Life-Threatening, Hospitalization)
  Sender: FDA-Public Use
  Company Number: US-STRIDES ARCOLAB LIMITED-2021SP029125

PATIENT
  Age: 30 Year
  Sex: Female

DRUGS (2)
  1. AMLODIPINE [Suspect]
     Active Substance: AMLODIPINE BESYLATE
     Indication: Product used for unknown indication
     Dosage: UNK
     Route: 065
  2. HYDROXYZINE [Suspect]
     Active Substance: HYDROXYZINE HYDROCHLORIDE
     Indication: Product used for unknown indication
     Dosage: 2 GRAM, HER FAMILY ALSO REPORTED THAT THEY FOUND AN EMPTY BOTTLE OF 90 TABLETS OF HYDROXYZINE 25MG A
     Route: 048

REACTIONS (9)
  - Acute respiratory distress syndrome [Unknown]
  - Distributive shock [Recovered/Resolved]
  - Suicide attempt [Unknown]
  - Delirium [Unknown]
  - Hallucination, visual [Unknown]
  - Urinary retention [Unknown]
  - Metabolic acidosis [Unknown]
  - Intentional overdose [Unknown]
  - Thirst [Unknown]
